FAERS Safety Report 19597193 (Version 1)
Quarter: 2021Q3

REPORT INFORMATION
  Report Type: Spontaneous
  Country: US (occurrence: US)
  Receive Date: 20210723
  Receipt Date: 20210723
  Transmission Date: 20211014
  Serious: Yes (Hospitalization)
  Sender: FDA-Public Use
  Company Number: US-STRIDES ARCOLAB LIMITED-2020SP010414

PATIENT
  Age: 64 Year
  Sex: Female

DRUGS (3)
  1. TACROLIMUS. [Suspect]
     Active Substance: TACROLIMUS
     Indication: HEART TRANSPLANT
     Dosage: UNK
     Route: 065
  2. PREDNISOLONE. [Suspect]
     Active Substance: PREDNISOLONE
     Indication: HEART TRANSPLANT
     Dosage: UNK
     Route: 065
  3. MYCOPHENOLATE MOFETIL. [Suspect]
     Active Substance: MYCOPHENOLATE MOFETIL
     Indication: HEART TRANSPLANT
     Dosage: UNK
     Route: 065

REACTIONS (11)
  - Febrile neutropenia [Recovered/Resolved]
  - Skin mass [Recovered/Resolved]
  - Ulcer [Recovered/Resolved]
  - Inflammation [Recovered/Resolved]
  - Phaeohyphomycosis [Recovered/Resolved]
  - Clostridium difficile colitis [Recovered/Resolved]
  - Chronic papillomatous dermatitis [Recovered/Resolved]
  - Skin plaque [Recovered/Resolved]
  - Urinary tract infection [Recovered/Resolved]
  - Gait disturbance [Recovered/Resolved]
  - Alternaria infection [Recovered/Resolved]
